FAERS Safety Report 10329891 (Version 1)
Quarter: 2014Q3

REPORT INFORMATION
  Report Type: Spontaneous
  Country: US (occurrence: US)
  Receive Date: 20140721
  Receipt Date: 20140721
  Transmission Date: 20150326
  Serious: Yes (Other)
  Sender: FDA-Public Use
  Company Number: US-GILEAD-2014-0108182

PATIENT
  Age: 20 Year
  Sex: Female

DRUGS (13)
  1. VISTIDE [Suspect]
     Active Substance: CIDOFOVIR
     Dosage: 1 MG/KG, QD
     Route: 065
     Dates: start: 201208
  2. PREDNISONE. [Concomitant]
     Active Substance: PREDNISONE
     Dosage: 10 MG, QD
     Route: 065
     Dates: start: 201203
  3. VALGANCICLOVIR [Concomitant]
     Active Substance: VALGANCICLOVIR
     Indication: CYTOMEGALOVIRUS INFECTION
  4. VISTIDE [Suspect]
     Active Substance: CIDOFOVIR
     Dosage: 1 MG/KG, QD
     Route: 065
  5. VANCOMYCIN [Concomitant]
     Active Substance: VANCOMYCIN
     Dosage: UNK
     Route: 065
     Dates: start: 201205
  6. IMUNOGLOBULIN                      /00025201/ [Concomitant]
     Indication: PRODUCT USED FOR UNKNOWN INDICATION
     Route: 042
  7. DORIPENEM [Concomitant]
     Active Substance: DORIPENEM
     Indication: PRODUCT USED FOR UNKNOWN INDICATION
     Dosage: UNK
     Route: 065
     Dates: start: 201208
  8. HYDROCORTISONE. [Concomitant]
     Active Substance: HYDROCORTISONE
     Indication: ADRENOCORTICAL INSUFFICIENCY ACUTE
     Dosage: 100 MG, UNK
     Route: 065
  9. VANCOMYCIN [Concomitant]
     Active Substance: VANCOMYCIN
     Indication: PRODUCT USED FOR UNKNOWN INDICATION
     Dosage: UNK
     Route: 065
     Dates: start: 201208
  10. CYCLOSPORINE. [Concomitant]
     Active Substance: CYCLOSPORINE
     Indication: PRODUCT USED FOR UNKNOWN INDICATION
     Dosage: 125 MG, UNK
     Route: 065
     Dates: start: 201207
  11. PROBENECID. [Concomitant]
     Active Substance: PROBENECID
     Indication: PRODUCT USED FOR UNKNOWN INDICATION
     Dosage: UNK
     Route: 065
     Dates: start: 201208, end: 201208
  12. VISTIDE [Suspect]
     Active Substance: CIDOFOVIR
     Indication: ADENOVIRUS INFECTION
     Dosage: 1 MG/KG, QD
     Route: 065
  13. PREDNISONE. [Concomitant]
     Active Substance: PREDNISONE
     Indication: LYMPHOPROLIFERATIVE DISORDER
     Dosage: 30 MG, QD
     Route: 065

REACTIONS (3)
  - Off label use [Not Recovered/Not Resolved]
  - Blood creatinine increased [Unknown]
  - Drug ineffective [Not Recovered/Not Resolved]

NARRATIVE: CASE EVENT DATE: 2012
